FAERS Safety Report 6299274-4 (Version None)
Quarter: 2009Q3

REPORT INFORMATION
  Report Type: 
  Country: None (occurrence: None)
  Receive Date: 20090806
  Receipt Date: 20090803
  Transmission Date: 20100115
  Serious: Yes (Life-Threatening)
  Sender: FDA-Public Use
  Company Number: NZ-ASTRAZENECA-2009SE06492

PATIENT
  Age: 13150 Day
  Sex: Female

DRUGS (1)
  1. LIGNOCAINE [Suspect]
     Route: 030
     Dates: start: 20010703, end: 20010703

REACTIONS (1)
  - ANAPHYLACTIC REACTION [None]
